FAERS Safety Report 8602044-2 (Version None)
Quarter: 2012Q3

REPORT INFORMATION
  Report Type: 
  Country: None (occurrence: None)
  Receive Date: 20120817
  Receipt Date: 20120814
  Transmission Date: 20120928
  Serious: Yes (Other)
  Sender: FDA-Public Use
  Company Number: US-PFIZER INC-2012178731

PATIENT
  Age: 59 Year
  Sex: Female

DRUGS (3)
  1. CHANTIX [Suspect]
     Dosage: 1 MG, 2X/DAY
  2. WELLBUTRIN SR [Suspect]
     Dosage: 150 MG, 1X/DAY AT 6 AM
  3. PRISTIQ [Suspect]
     Dosage: 50 MG, 1X/DAY

REACTIONS (1)
  - LUNG NEOPLASM MALIGNANT [None]
